FAERS Safety Report 22299304 (Version 1)
Quarter: 2023Q2

REPORT INFORMATION
  Report Type: Spontaneous
  Country: US (occurrence: None)
  Receive Date: 20230508
  Receipt Date: 20230508
  Transmission Date: 20230722
  Serious: Yes (Hospitalization)
  Sender: FDA-Public Use
  Company Number: None

PATIENT
  Sex: Female

DRUGS (16)
  1. HYQVIA [Suspect]
     Active Substance: HUMAN IMMUNOGLOBULIN G\HYALURONIDASE RECOMBINANT HUMAN
     Indication: Autoimmune thyroiditis
     Dosage: 20 GM/200ML SUBCUTANEOUS??PUSH 20 ML HY INTO SUB-Q SET AT 1 TO 2 ML PER MINUTE.  THEN INFUSE 40 GM (
     Route: 058
     Dates: start: 20191107
  2. ASPIRIN [Concomitant]
     Active Substance: ASPIRIN
  3. CLONIDINE [Concomitant]
     Active Substance: CLONIDINE
  4. DIFLUCAN [Concomitant]
     Active Substance: FLUCONAZOLE
  5. EPINEPHRINE [Concomitant]
     Active Substance: EPINEPHRINE
  6. FERROUS SULF ELX [Concomitant]
  7. FOLIC ACID [Concomitant]
     Active Substance: FOLIC ACID
  8. MELATONIN [Concomitant]
     Active Substance: MELATONIN
  9. MESTINON [Concomitant]
     Active Substance: PYRIDOSTIGMINE BROMIDE
  10. METHOTREXATE [Concomitant]
     Active Substance: METHOTREXATE
  11. POTASSIUM [Concomitant]
     Active Substance: POTASSIUM
  12. PREDNISONE [Concomitant]
  13. PYARIDOSTIGM [Concomitant]
  14. SERTRALINE [Concomitant]
     Active Substance: SERTRALINE HYDROCHLORIDE
  15. SYNTHROID [Concomitant]
  16. VISTARIL [Concomitant]
     Active Substance: HYDROXYZINE PAMOATE

REACTIONS (1)
  - Hospitalisation [None]
